FAERS Safety Report 15523764 (Version 4)
Quarter: 2019Q4

REPORT INFORMATION
  Report Type: Spontaneous
  Country: US (occurrence: US)
  Receive Date: 20181019
  Receipt Date: 20191219
  Transmission Date: 20200122
  Serious: Yes (Other)
  Sender: FDA-Public Use
  Company Number: US-ASTRAZENECA-2018SF32593

PATIENT
  Age: 69 Year
  Sex: Male
  Weight: 95.2 kg

DRUGS (56)
  1. OMEPRAZOLE. [Suspect]
     Active Substance: OMEPRAZOLE
     Indication: GASTROOESOPHAGEAL REFLUX DISEASE
     Route: 048
     Dates: start: 20191125
  2. CLONIDINE. [Concomitant]
     Active Substance: CLONIDINE
  3. ATENOLOL. [Concomitant]
     Active Substance: ATENOLOL
  4. SINGULAIR [Concomitant]
     Active Substance: MONTELUKAST SODIUM
  5. ALPHA LIPOIC ACID [Concomitant]
     Active Substance: .ALPHA.-LIPOIC ACID
     Route: 065
     Dates: start: 20111025
  6. METOPROLOL SUCCINATE. [Concomitant]
     Active Substance: METOPROLOL SUCCINATE
     Route: 048
     Dates: start: 20190925, end: 20190927
  7. GUAIFENESIN. [Concomitant]
     Active Substance: GUAIFENESIN
     Route: 048
     Dates: start: 20170216, end: 20170318
  8. KETOCONAZOLE. [Concomitant]
     Active Substance: KETOCONAZOLE
     Dosage: 2%
     Route: 065
     Dates: start: 20131210, end: 20141211
  9. ALKA-SELTZER [Concomitant]
     Active Substance: ANHYDROUS CITRIC ACID\ASPIRIN\SODIUM BICARBONATE
  10. CLOPIDOGREL [Concomitant]
     Active Substance: CLOPIDOGREL BISULFATE
  11. LISINOPRIL. [Concomitant]
     Active Substance: LISINOPRIL
  12. CIPROFLOXACIN. [Concomitant]
     Active Substance: CIPROFLOXACIN
     Dosage: TWICW A DAY
     Route: 065
     Dates: start: 20111125
  13. COLCHICINE. [Concomitant]
     Active Substance: COLCHICINE
     Indication: GOUT
     Route: 048
     Dates: start: 20191025, end: 20191124
  14. PREDNISONE. [Concomitant]
     Active Substance: PREDNISONE
     Indication: INFLAMMATION
     Dosage: TAKE TWO TABLETS
     Route: 048
     Dates: start: 20191030, end: 20191129
  15. ALBUTEROL. [Concomitant]
     Active Substance: ALBUTEROL
     Route: 065
     Dates: start: 20190926, end: 20190927
  16. FUROSEMIDE. [Concomitant]
     Active Substance: FUROSEMIDE
     Route: 065
     Dates: start: 20190926, end: 20190926
  17. FLUOROURACIL. [Concomitant]
     Active Substance: FLUOROURACIL
     Dosage: 5%
     Route: 065
     Dates: start: 20180918, end: 20181018
  18. GABAPENTIN. [Concomitant]
     Active Substance: GABAPENTIN
     Route: 048
     Dates: start: 20120221, end: 20130221
  19. NEXIUM [Suspect]
     Active Substance: ESOMEPRAZOLE MAGNESIUM
     Indication: GASTROOESOPHAGEAL REFLUX DISEASE
     Route: 048
  20. FAMOTIDINE. [Concomitant]
     Active Substance: FAMOTIDINE
  21. RANITIDINE. [Concomitant]
     Active Substance: RANITIDINE
  22. MONTELUKAST [Concomitant]
     Active Substance: MONTELUKAST SODIUM
     Route: 048
     Dates: start: 20191125
  23. SPIRONOLACTONE. [Concomitant]
     Active Substance: SPIRONOLACTONE
     Route: 048
     Dates: start: 20181011, end: 20191012
  24. CLINDAMYCIN. [Concomitant]
     Active Substance: CLINDAMYCIN
     Route: 048
     Dates: start: 20170504, end: 20170603
  25. PREVACID 24 HR [Suspect]
     Active Substance: LANSOPRAZOLE
     Indication: GASTROOESOPHAGEAL REFLUX DISEASE
     Route: 065
  26. CRESTOR [Concomitant]
     Active Substance: ROSUVASTATIN CALCIUM
  27. GLIPIZIDE. [Concomitant]
     Active Substance: GLIPIZIDE
  28. ATROPINE. [Concomitant]
     Active Substance: ATROPINE
     Dosage: 0.5 MG/ML
     Route: 065
     Dates: start: 20190925, end: 20190927
  29. CODEINE [Concomitant]
     Active Substance: CODEINE
     Route: 048
     Dates: start: 20130704, end: 20130803
  30. NEXIUM [Suspect]
     Active Substance: ESOMEPRAZOLE MAGNESIUM
     Indication: GASTROOESOPHAGEAL REFLUX DISEASE
     Route: 048
     Dates: start: 20060803, end: 20071110
  31. TUMS [Concomitant]
     Active Substance: CALCIUM CARBONATE
  32. PEPTO-BISMOL [Concomitant]
     Active Substance: BISMUTH SUBSALICYLATE
  33. METOPROLOL SUCCINATE. [Concomitant]
     Active Substance: METOPROLOL SUCCINATE
  34. ASPIRIN. [Concomitant]
     Active Substance: ASPIRIN
  35. LORATADINE. [Concomitant]
     Active Substance: LORATADINE
  36. TRIAMCINOLON [Concomitant]
  37. CALCIUM CITRATE [Concomitant]
     Active Substance: CALCIUM CITRATE
     Dosage: 2 TABLETS EVERY DAY
     Route: 048
     Dates: start: 20191125
  38. CARVEDILOL. [Concomitant]
     Active Substance: CARVEDILOL
     Indication: BLOOD PRESSURE MEASUREMENT
     Route: 048
     Dates: start: 20181026, end: 20191027
  39. CETIRIZINE [Concomitant]
     Active Substance: CETIRIZINE HYDROCHLORIDE
     Route: 048
     Dates: start: 20191125
  40. FLUCONAZOLE. [Concomitant]
     Active Substance: FLUCONAZOLE
     Indication: FUNGAL INFECTION
     Dosage: TAKE ONE HALF TABLET
     Route: 048
     Dates: start: 20110630
  41. NITROGLYCERIN. [Concomitant]
     Active Substance: NITROGLYCERIN
     Route: 048
     Dates: start: 20190929, end: 20191029
  42. IBUPROFEN. [Concomitant]
     Active Substance: IBUPROFEN
     Route: 065
     Dates: start: 20120919
  43. OMEPRAZOLE. [Suspect]
     Active Substance: OMEPRAZOLE
     Indication: GASTROOESOPHAGEAL REFLUX DISEASE
     Route: 048
  44. MILK OF MAGNESIA [Concomitant]
     Active Substance: MAGNESIUM HYDROXIDE
  45. ROLAIDS [Concomitant]
     Active Substance: CALCIUM CARBONATE\MAGNESIUM HYDROXIDE
  46. LANTUS [Concomitant]
     Active Substance: INSULIN GLARGINE
  47. METFORMIN [Concomitant]
     Active Substance: METFORMIN HYDROCHLORIDE
  48. NIFEDIPINE. [Concomitant]
     Active Substance: NIFEDIPINE
     Route: 048
     Dates: start: 20190925, end: 20190927
  49. REGADENOSON [Concomitant]
     Active Substance: REGADENOSON
     Dosage: 5.0ML ONCE/SINGLE ADMINISTRATION
     Route: 065
     Dates: start: 20190926, end: 20190926
  50. SIMVASTATIN. [Concomitant]
     Active Substance: SIMVASTATIN
     Route: 048
     Dates: start: 20171226, end: 20181227
  51. KETOCONAZOLE. [Concomitant]
     Active Substance: KETOCONAZOLE
     Dosage: 2%
     Route: 065
     Dates: start: 20131210, end: 20141211
  52. AMLODIPINE [Concomitant]
     Active Substance: AMLODIPINE BESYLATE
  53. FLUTICASONE. [Concomitant]
     Active Substance: FLUTICASONE
  54. DEXAMETHASONE. [Concomitant]
     Active Substance: DEXAMETHASONE
     Route: 065
     Dates: start: 20100426
  55. TAMSULOSIN [Concomitant]
     Active Substance: TAMSULOSIN
     Route: 048
     Dates: start: 20190925, end: 20190927
  56. MOMETASONE [Concomitant]
     Active Substance: MOMETASONE
     Dosage: 50 MCG
     Route: 065
     Dates: start: 20140307, end: 20150308

REACTIONS (3)
  - Acute kidney injury [Unknown]
  - Renal failure [Unknown]
  - Chronic kidney disease [Not Recovered/Not Resolved]

NARRATIVE: CASE EVENT DATE: 2005
